FAERS Safety Report 16371801 (Version 24)
Quarter: 2023Q4

REPORT INFORMATION
  Report Type: Spontaneous
  Country: US (occurrence: US)
  Receive Date: 20190530
  Receipt Date: 20231106
  Transmission Date: 20240110
  Serious: No
  Sender: FDA-Public Use
  Company Number: US-PFIZER INC-2019225409

PATIENT
  Age: 84 Year
  Sex: Female
  Weight: 71 kg

DRUGS (18)
  1. IBRANCE [Suspect]
     Active Substance: PALBOCICLIB
     Indication: Breast cancer metastatic
     Dosage: 125 MG, DAILY
     Dates: start: 2018
  2. IBRANCE [Suspect]
     Active Substance: PALBOCICLIB
     Dosage: 21 DAYS ON AND 7 DAYS OFF,ON HER 4TH CYCLE
     Route: 048
     Dates: start: 20190119, end: 201901
  3. IBRANCE [Suspect]
     Active Substance: PALBOCICLIB
     Dosage: UNK
     Route: 048
     Dates: start: 201901, end: 201901
  4. IBRANCE [Suspect]
     Active Substance: PALBOCICLIB
     Dosage: 21 DAYS AND THEN OFF FOR 7 DAYS
     Route: 048
     Dates: start: 201901, end: 2019
  5. IBRANCE [Suspect]
     Active Substance: PALBOCICLIB
     Dosage: FOR 21 DAYS AND OFF 7 DAYS
     Route: 048
  6. ASPIRIN [Concomitant]
     Active Substance: ASPIRIN
     Dosage: 81 MG, 1X/DAY (1 PER NIGHT)
  7. MINERALS\VITAMINS [Concomitant]
     Active Substance: MINERALS\VITAMINS
     Dosage: 1 DF, 1X/DAY
  8. ESCITALOPRAM [Concomitant]
     Active Substance: ESCITALOPRAM OXALATE
     Dosage: 0.5 DF, (1/2 TAB EVERY OTHER DAY-EVERY DAY IF NEED)
  9. EXEMESTANE [Concomitant]
     Active Substance: EXEMESTANE
     Indication: Breast cancer metastatic
     Dosage: 25 MG
     Dates: start: 20181027, end: 2018
  10. EXEMESTANE [Concomitant]
     Active Substance: EXEMESTANE
     Dosage: 25 MG, 1X/DAY
     Route: 048
     Dates: start: 201812
  11. PROPRANOLOL [Concomitant]
     Active Substance: PROPRANOLOL HYDROCHLORIDE
     Dosage: UNK, 2X/DAY (TAKE AM AND PM)
     Dates: start: 201906
  12. DIETARY SUPPLEMENT [Concomitant]
     Active Substance: DIETARY SUPPLEMENT
     Indication: Blood cholesterol abnormal
     Dosage: 2 DF, DAILY
  13. DIETARY SUPPLEMENT [Concomitant]
     Active Substance: DIETARY SUPPLEMENT
     Dosage: 1200 MG, 2X/DAY [ONE IN THE MORNING AND ONE AT NIGHT]
  14. TIMOLOL [Concomitant]
     Active Substance: TIMOLOL
     Dosage: 1 DROP, 1X/DAY
     Route: 047
  15. HERBALS\TURMERIC [Concomitant]
     Active Substance: HERBALS\TURMERIC
     Dosage: 2 DF, DAILY
  16. HERBALS\TURMERIC [Concomitant]
     Active Substance: HERBALS\TURMERIC
     Dosage: 1200 MG, 2X/DAY
  17. VITAMIN C [Concomitant]
     Active Substance: ASCORBIC ACID
     Dosage: 100 MG, DAILY
  18. VITAMIN D3 [Concomitant]
     Active Substance: CHOLECALCIFEROL
     Dosage: 5000 IU, DAILY (5000 IU PER DAY)

REACTIONS (32)
  - Product dose omission issue [Unknown]
  - Product storage error [Unknown]
  - Poor quality product administered [Unknown]
  - Neoplasm progression [Unknown]
  - Blood pressure abnormal [Recovered/Resolved]
  - Tinnitus [Unknown]
  - Alopecia [Not Recovered/Not Resolved]
  - Fatigue [Unknown]
  - Hunger [Unknown]
  - Weight increased [Not Recovered/Not Resolved]
  - Stomatitis [Recovering/Resolving]
  - Trigger finger [Unknown]
  - Arthralgia [Unknown]
  - Dry eye [Unknown]
  - Lacrimation increased [Not Recovered/Not Resolved]
  - Visual impairment [Unknown]
  - Eye irritation [Not Recovered/Not Resolved]
  - Glossodynia [Not Recovered/Not Resolved]
  - Tongue movement disturbance [Not Recovered/Not Resolved]
  - Aphthous ulcer [Recovering/Resolving]
  - Blood sodium decreased [Unknown]
  - Pain in extremity [Recovering/Resolving]
  - Gait disturbance [Unknown]
  - Feeling abnormal [Unknown]
  - Insomnia [Unknown]
  - Back pain [Recovering/Resolving]
  - Diarrhoea [Unknown]
  - Spinal stenosis [Unknown]
  - Hypoaesthesia [Unknown]
  - COVID-19 [Unknown]
  - Pruritus [Unknown]
  - Discomfort [Unknown]

NARRATIVE: CASE EVENT DATE: 20190101
